FAERS Safety Report 7927860-1 (Version None)
Quarter: 2011Q4

REPORT INFORMATION
  Report Type: 
  Country: None (occurrence: None)
  Receive Date: 20111116
  Receipt Date: 20111104
  Transmission Date: 20120403
  Serious: Yes (Hospitalization)
  Sender: FDA-Public Use
  Company Number: TPA2011A07474

PATIENT
  Age: 68 Year
  Sex: Male
  Weight: 107.9561 kg

DRUGS (4)
  1. ACTOS [Suspect]
     Indication: TYPE 2 DIABETES MELLITUS
     Dosage: 45 MG, 2 IN 1 D, PER ORAL
     Route: 048
     Dates: start: 20030501, end: 20090501
  2. LIPITOR [Concomitant]
  3. METFORMIN HCL [Concomitant]
  4. GLIPIZIDE [Concomitant]

REACTIONS (5)
  - PAIN IN EXTREMITY [None]
  - BLADDER CANCER [None]
  - DYSPNOEA [None]
  - MUSCULOSKELETAL PAIN [None]
  - MYALGIA [None]
